APPROVED DRUG PRODUCT: CIPRO
Active Ingredient: CIPROFLOXACIN HYDROCHLORIDE
Strength: EQ 250MG BASE
Dosage Form/Route: TABLET;ORAL
Application: N019537 | Product #002 | TE Code: AB
Applicant: BAYER HEALTHCARE PHARMACEUTICALS INC
Approved: Oct 22, 1987 | RLD: Yes | RS: No | Type: RX